FAERS Safety Report 11847858 (Version 1)
Quarter: 2015Q4

REPORT INFORMATION
  Report Type: Report from Study
  Country: CN (occurrence: CN)
  Receive Date: 20151217
  Receipt Date: 20151217
  Transmission Date: 20160305
  Serious: Yes (Hospitalization, Other)
  Sender: FDA-Public Use
  Company Number: CN-GILEAD-2015-0186507

PATIENT
  Age: 32 Year
  Sex: Female

DRUGS (3)
  1. BLINDED ADEFOVIR DIPIVOXIL [Suspect]
     Active Substance: ADEFOVIR DIPIVOXIL
     Indication: CHRONIC HEPATITIS B
     Dosage: 1 DF, QD
     Route: 065
     Dates: start: 20111101
  2. BLINDED TENOFOVIR DISOPROXIL FUMARATE [Suspect]
     Active Substance: TENOFOVIR DISOPROXIL FUMARATE
     Indication: CHRONIC HEPATITIS B
     Dosage: 1 DF, QD
     Route: 065
     Dates: start: 20111101
  3. TENOFOVIR DISOPROXIL FUMARATE. [Suspect]
     Active Substance: TENOFOVIR DISOPROXIL FUMARATE
     Indication: PRODUCT USED FOR UNKNOWN INDICATION
     Dosage: 300 MG, QD
     Route: 065
     Dates: start: 20120927

REACTIONS (1)
  - Hepatic cancer [Recovered/Resolved with Sequelae]

NARRATIVE: CASE EVENT DATE: 20140510
